FAERS Safety Report 8118239-0 (Version None)
Quarter: 2012Q1

REPORT INFORMATION
  Report Type: 
  Country: None (occurrence: None)
  Receive Date: 20120201
  Receipt Date: 20120118
  Transmission Date: 20120608
  Serious: Yes (Other)
  Sender: FDA-Public Use
  Company Number: 1000027436

PATIENT
  Age: 71 Year
  Sex: Male

DRUGS (6)
  1. MEMANTINE HYDROCHLORIDE [Suspect]
     Indication: DEMENTIA ALZHEIMER'S TYPE
     Dosage: 20 MG (20 MG, 1 IN 1 D), ORAL
     Route: 048
     Dates: start: 20120104, end: 20120118
  2. GENERIC OF EPADEL (ETHYL ICOSAPENTATE) (ETHYL ICOSAPENTATE) [Concomitant]
  3. ARICEPT [Concomitant]
  4. GLUFAST (MITIGLINIDE CALCIUM HYDRATE) (MITIGLINIDE CALCIUM HYDRATE) [Concomitant]
  5. VOGLIBOSE OD (VOGLIBOSE) (VOGLIBOSE) [Concomitant]
  6. MEMANTINE HYDROCHLORIDE [Suspect]
     Indication: DEMENTIA ALZHEIMER'S TYPE
     Dosage: 5 MG (5 MG, 1 IN 1 D), ORAL 10 MG (10 MG, 1 IN 1 D), ORAL 15 MG (15 MG, 1 IN 1 D), ORAL
     Route: 048
     Dates: end: 20120103

REACTIONS (5)
  - SYNCOPE [None]
  - BLOOD PRESSURE DECREASED [None]
  - SOMNOLENCE [None]
  - PALLOR [None]
  - MUSCLE SPASMS [None]
